FAERS Safety Report 6738264-1 (Version None)
Quarter: 2010Q2

REPORT INFORMATION
  Report Type: 
  Country: None (occurrence: None)
  Receive Date: 20100524
  Receipt Date: 20100519
  Transmission Date: 20101027
  Serious: Yes (Death)
  Sender: FDA-Public Use
  Company Number: A0860415A

PATIENT
  Age: 83 Year
  Sex: Male

DRUGS (8)
  1. ARIXTRA [Suspect]
     Dosage: 10MG PER DAY
     Route: 058
     Dates: start: 20090101, end: 20100508
  2. OMEPRAZOLE [Concomitant]
  3. LEVOTHYROXINE SODIUM [Concomitant]
  4. BUMETANIDE [Concomitant]
  5. LEXAPRO [Concomitant]
  6. CARVEDILOL [Concomitant]
  7. DIOVAN [Concomitant]
  8. NEURONTIN [Concomitant]

REACTIONS (1)
  - DEATH [None]
